FAERS Safety Report 4354042-5 (Version None)
Quarter: 2004Q2

REPORT INFORMATION
  Report Type: 
  Country: None (occurrence: None)
  Receive Date: 20040503
  Receipt Date: 20040420
  Transmission Date: 20050107
  Serious: Yes (Hospitalization)
  Sender: FDA-Public Use
  Company Number: FR-SHR-04-021122

PATIENT
  Age: 53 Year
  Sex: Female
  Weight: 115 kg

DRUGS (6)
  1. SOTALOL(SOTALOL HYDROCHLORIDE) TABLET [Suspect]
     Indication: HYPERTENSION
     Dosage: SEE IMAGE
     Route: 048
     Dates: start: 19980423, end: 20040127
  2. SOTALOL(SOTALOL HYDROCHLORIDE) TABLET [Suspect]
     Indication: HYPERTENSION
     Dosage: SEE IMAGE
     Route: 048
     Dates: start: 20040127, end: 20040203
  3. SOTALOL(SOTALOL HYDROCHLORIDE) TABLET [Suspect]
     Indication: HYPERTENSION
     Dosage: SEE IMAGE
     Route: 048
     Dates: start: 20040210
  4. FENOFIBRATE [Suspect]
     Indication: LIPIDS ABNORMAL
     Dosage: SEE IMAGE
     Route: 048
     Dates: start: 20010101, end: 20031215
  5. FENOFIBRATE [Suspect]
     Indication: LIPIDS ABNORMAL
     Dosage: SEE IMAGE
     Route: 048
     Dates: start: 20031220, end: 20040112
  6. FENOFIBRATE [Suspect]
     Indication: LIPIDS ABNORMAL
     Dosage: ORAL
     Route: 048
     Dates: start: 20031215, end: 20031220

REACTIONS (3)
  - DERMATOMYOSITIS [None]
  - IATROGENIC INJURY [None]
  - TOXIC SKIN ERUPTION [None]
